FAERS Safety Report 12282109 (Version 1)
Quarter: 2016Q2

REPORT INFORMATION
  Report Type: Spontaneous
  Country: US (occurrence: US)
  Receive Date: 20160419
  Receipt Date: 20160419
  Transmission Date: 20160815
  Serious: Yes (Other)
  Sender: FDA-Public Use
  Company Number: US-BAYER-2016-073163

PATIENT
  Age: 54 Year
  Sex: Female
  Weight: 57.6 kg

DRUGS (1)
  1. AFRIN ORIGINAL [Suspect]
     Active Substance: OXYMETAZOLINE HYDROCHLORIDE
     Indication: NASAL CONGESTION
     Dosage: 2 DF, QD
     Route: 045

REACTIONS (4)
  - Incorrect drug administration duration [None]
  - Drug dependence [None]
  - Product closure removal difficult [None]
  - Product use issue [None]
